FAERS Safety Report 7993259-5 (Version None)
Quarter: 2011Q4

REPORT INFORMATION
  Report Type: 
  Country: None (occurrence: None)
  Receive Date: 20111219
  Receipt Date: 20110926
  Transmission Date: 20120403
  Serious: No
  Sender: FDA-Public Use
  Company Number: US-ASTRAZENECA-2009SE24398

PATIENT
  Age: 58 Year
  Sex: Male

DRUGS (12)
  1. CELEXA [Concomitant]
  2. RITALIN [Concomitant]
  3. XANAX [Concomitant]
  4. CRESTOR [Suspect]
     Route: 048
  5. WELLBUTRIN [Concomitant]
  6. MOTRIN [Concomitant]
  7. PROZAC [Concomitant]
  8. NOVALOG INSULIN [Concomitant]
  9. DDAVP [Concomitant]
  10. LISINOPRIL [Concomitant]
  11. CRESTOR [Suspect]
     Route: 048
  12. LEVEMIR [Concomitant]

REACTIONS (5)
  - NAUSEA [None]
  - WRONG TECHNIQUE IN DRUG USAGE PROCESS [None]
  - COGNITIVE DISORDER [None]
  - MALAISE [None]
  - HEADACHE [None]
